FAERS Safety Report 16227399 (Version 1)
Quarter: 2019Q2

REPORT INFORMATION
  Report Type: Spontaneous
  Country: US (occurrence: US)
  Receive Date: 20190318
  Receipt Date: 20190318
  Transmission Date: 20190711
  Serious: Yes (Hospitalization)
  Sender: FDA-Public Use
  Company Number: None

PATIENT
  Age: 67 Year
  Sex: Male

DRUGS (1)
  1. AMOXICILLIN/CLAVULANATE [Suspect]
     Active Substance: AMOXICILLIN\CLAVULANATE POTASSIUM
     Indication: EAR INFECTION
     Dosage: 875/125MG BID PO
     Route: 048
     Dates: start: 20190213, end: 20190219

REACTIONS (8)
  - Tremor [None]
  - Rash generalised [None]
  - Urticaria [None]
  - Rash [None]
  - Insomnia [None]
  - Pruritus [None]
  - Heavy exposure to ultraviolet light [None]
  - Facial pain [None]

NARRATIVE: CASE EVENT DATE: 20190224
